FAERS Safety Report 13678209 (Version 1)
Quarter: 2017Q2

REPORT INFORMATION
  Report Type: Spontaneous
  Country: US (occurrence: US)
  Receive Date: 20170621
  Receipt Date: 20170621
  Transmission Date: 20170830
  Serious: Yes (Life-Threatening, Hospitalization, Disabling)
  Sender: FDA-Public Use
  Company Number: None

PATIENT
  Age: 53 Year
  Sex: Female
  Weight: 74.25 kg

DRUGS (1)
  1. LORAZEPAM. [Suspect]
     Active Substance: LORAZEPAM
     Indication: ANXIETY
     Route: 048

REACTIONS (7)
  - Drug tolerance [None]
  - Epstein-Barr virus infection [None]
  - Agoraphobia [None]
  - Suicidal ideation [None]
  - Urinary tract infection [None]
  - Withdrawal syndrome [None]
  - Immunodeficiency [None]

NARRATIVE: CASE EVENT DATE: 20160630
